FAERS Safety Report 25120333 (Version 1)
Quarter: 2025Q1

REPORT INFORMATION
  Report Type: Spontaneous
  Country: BE (occurrence: BE)
  Receive Date: 20250325
  Receipt Date: 20250325
  Transmission Date: 20250408
  Serious: Yes (Other)
  Sender: SANDOZ
  Company Number: None

PATIENT
  Sex: Female
  Weight: 70 kg

DRUGS (1)
  1. ACETAMINOPHEN [Suspect]
     Active Substance: ACETAMINOPHEN
     Indication: Intentional self-injury
     Dosage: 10 GRAM, SINGLE (10 GR, ONCE)
     Route: 048

REACTIONS (2)
  - Alcohol poisoning [Not Recovered/Not Resolved]
  - Intentional overdose [Not Recovered/Not Resolved]
